FAERS Safety Report 9414049 (Version 3)
Quarter: 2013Q3

REPORT INFORMATION
  Report Type: Spontaneous
  Country: DK (occurrence: DK)
  Receive Date: 20130723
  Receipt Date: 20130806
  Transmission Date: 20140515
  Serious: Yes (Other)
  Sender: FDA-Public Use
  Company Number: DK-PFIZER INC-2013212412

PATIENT
  Age: 62 Year
  Sex: Female

DRUGS (13)
  1. CARBOPLATIN [Suspect]
     Indication: BREAST CANCER
     Dosage: UNK
  2. METHOTREXATE [Suspect]
     Indication: BREAST CANCER
     Dosage: UNK
     Dates: start: 2003
  3. FLUOROURACIL [Suspect]
     Indication: BREAST CANCER
     Dates: start: 2003
  4. EPIRUBICIN HCL [Suspect]
     Indication: BREAST CANCER
     Dosage: UNK
     Dates: start: 2003
  5. GEMCITABINE HYDROCHLORIDE [Suspect]
     Indication: BREAST CANCER
  6. NAVELBINE [Suspect]
     Indication: BREAST CANCER
  7. HERCEPTIN [Suspect]
     Indication: BREAST CANCER
     Dates: start: 200701
  8. XELODA [Suspect]
     Indication: BREAST CANCER
     Dates: start: 200812
  9. TAXOTERE [Suspect]
     Indication: BREAST CANCER
     Dates: start: 200701
  10. ERIBULIN [Suspect]
     Indication: BREAST CANCER
     Dates: start: 201201, end: 201301
  11. LAPATINIB [Suspect]
     Indication: BREAST CANCER
     Dosage: UNK
     Route: 065
     Dates: start: 20100719, end: 201201
  12. SENDOXAN [Suspect]
     Indication: BREAST CANCER
     Dates: start: 2003
  13. CORODIL [Concomitant]
     Indication: CARDIAC DISORDER

REACTIONS (3)
  - Cardiac disorder [Unknown]
  - Disease progression [Not Recovered/Not Resolved]
  - Breast cancer [Not Recovered/Not Resolved]
